FAERS Safety Report 4504408-5 (Version None)
Quarter: 2004Q4

REPORT INFORMATION
  Report Type: 
  Country: None (occurrence: None)
  Receive Date: 20041116
  Receipt Date: 20041102
  Transmission Date: 20050328
  Serious: Yes (Death)
  Sender: FDA-Public Use
  Company Number: 1781-096-1

PATIENT
  Age: 69 Year
  Sex: Female

DRUGS (1)
  1. DEXFERRUM [Suspect]
     Indication: ANAEMIA
     Dosage: 100 MG IV DAILY X 4
     Dates: start: 20041005, end: 20041008

REACTIONS (1)
  - HEPATIC FAILURE [None]
